FAERS Safety Report 7770059-2 (Version None)
Quarter: 2011Q3

REPORT INFORMATION
  Report Type: 
  Country: None (occurrence: None)
  Receive Date: 20110922
  Receipt Date: 20110331
  Transmission Date: 20111222
  Serious: No
  Sender: FDA-Public Use
  Company Number: US-ASTRAZENECA-2010SE47923

PATIENT
  Age: 59 Year
  Sex: Female
  Weight: 90.7 kg

DRUGS (34)
  1. SEROQUEL [Suspect]
     Route: 048
     Dates: start: 20101006
  2. VYCODAN [Concomitant]
     Indication: FIBROMYALGIA
  3. DEPAKOTE [Concomitant]
  4. CORTISONE SHOTS [Concomitant]
  5. SEROQUEL [Suspect]
     Route: 048
     Dates: start: 20101006
  6. SEROQUEL [Suspect]
     Dosage: 50 MG INCREASED TO 300 MG
     Route: 048
     Dates: start: 20110103
  7. ASPIRIN [Concomitant]
  8. VIT B [Concomitant]
     Indication: NEUROPATHY PERIPHERAL
  9. ASPIRIN [Concomitant]
     Indication: PRODUCT USED FOR UNKNOWN INDICATION
  10. APAP TAB [Concomitant]
     Indication: FIBROMYALGIA
     Route: 048
  11. SEROQUEL [Suspect]
     Route: 048
     Dates: start: 20101001
  12. SEROQUEL [Suspect]
     Route: 048
     Dates: start: 20101001
  13. SEROQUEL [Suspect]
     Dosage: 50 MG INCREASED TO 300 MG
     Route: 048
     Dates: start: 20110103
  14. SEROQUEL [Suspect]
     Route: 048
     Dates: start: 20100220
  15. SEROQUEL [Suspect]
     Route: 048
     Dates: start: 20100220
  16. SEROQUEL [Suspect]
     Route: 048
     Dates: start: 20100220
  17. LYRICA [Concomitant]
     Route: 048
  18. CALCIUM CARBONATE [Concomitant]
     Indication: BONE DISORDER
     Dosage: ONE TWO TIMES A DAY
  19. SEROQUEL [Suspect]
     Route: 048
     Dates: start: 20101006
  20. SEROQUEL [Suspect]
     Route: 048
     Dates: start: 20101006
  21. SEROQUEL [Suspect]
     Indication: MAJOR DEPRESSION
     Route: 048
     Dates: start: 20000101, end: 20000101
  22. SEROQUEL [Suspect]
     Route: 048
     Dates: start: 20100220
  23. SEROQUEL [Suspect]
     Route: 048
     Dates: start: 20101001
  24. FLUOXETINE [Concomitant]
     Indication: DEPRESSION
     Route: 048
  25. SEROQUEL [Suspect]
     Indication: BIPOLAR DISORDER
     Route: 048
     Dates: start: 20000101, end: 20000101
  26. SEROQUEL [Suspect]
     Indication: BIPOLAR I DISORDER
     Route: 048
     Dates: start: 20000101, end: 20000101
  27. SEROQUEL [Suspect]
     Dosage: 50 MG INCREASED TO 300 MG
     Route: 048
     Dates: start: 20110103
  28. SEROQUEL [Suspect]
     Dosage: 50 MG INCREASED TO 300 MG
     Route: 048
     Dates: start: 20110103
  29. LYRICA [Concomitant]
     Indication: FIBROMYALGIA
     Route: 048
  30. HYDROCODONE [Concomitant]
     Indication: PAIN
     Dosage: 10/325 ONE FOUR TIMES A DAY
  31. SEROQUEL [Suspect]
     Route: 048
     Dates: start: 20000101, end: 20000101
  32. SEROQUEL [Suspect]
     Route: 048
     Dates: start: 20101001
  33. VYCODAN [Concomitant]
     Indication: PAIN
  34. LEVOTHYROXINE SODIUM [Concomitant]
     Indication: HYPOTHYROIDISM

REACTIONS (18)
  - HYPERSOMNIA [None]
  - THERAPEUTIC RESPONSE UNEXPECTED [None]
  - MUSCULOSKELETAL PAIN [None]
  - GASTRITIS [None]
  - MYALGIA [None]
  - WEIGHT INCREASED [None]
  - MANIA [None]
  - HYPOGLYCAEMIA [None]
  - NO ADVERSE EVENT [None]
  - MEMORY IMPAIRMENT [None]
  - DEPRESSION [None]
  - INCORRECT DOSE ADMINISTERED [None]
  - CHEST PAIN [None]
  - TACHYPHRENIA [None]
  - DYSPNOEA EXERTIONAL [None]
  - DRUG DOSE OMISSION [None]
  - JOINT INJURY [None]
  - DRY MOUTH [None]
